FAERS Safety Report 17826914 (Version 9)
Quarter: 2022Q1

REPORT INFORMATION
  Report Type: Report from Study
  Country: CA (occurrence: CA)
  Receive Date: 20200526
  Receipt Date: 20220201
  Transmission Date: 20220423
  Serious: Yes (Other)
  Sender: FDA-Public Use
  Company Number: PHHY2019CA119094

PATIENT
  Age: 58 Year
  Sex: Female

DRUGS (4)
  1. SANDOSTATIN LAR DEPOT [Suspect]
     Active Substance: OCTREOTIDE ACETATE
     Indication: Acral overgrowth
     Dosage: 20 MG, Q4W (EVERY 4 WEEKS)
     Route: 030
     Dates: start: 20040101
  2. SANDOSTATIN LAR DEPOT [Suspect]
     Active Substance: OCTREOTIDE ACETATE
     Indication: Acromegaly
     Dosage: 20 MG, Q4W (EVERY 4 WEEKS)
     Route: 030
  3. SANDOSTATIN LAR DEPOT [Suspect]
     Active Substance: OCTREOTIDE ACETATE
  4. DOSTINEX [Concomitant]
     Active Substance: CABERGOLINE
     Indication: Product used for unknown indication
     Dosage: UNK UNK, QW (ONCE A WEEK)
     Route: 048

REACTIONS (15)
  - Chorioretinopathy [Unknown]
  - Visual impairment [Unknown]
  - Graft haemorrhage [Unknown]
  - Nasopharyngitis [Unknown]
  - Stress [Unknown]
  - Tearfulness [Unknown]
  - Pain in extremity [Unknown]
  - Osteoarthritis [Unknown]
  - Blood cholesterol decreased [Unknown]
  - Anxiety [Unknown]
  - Injection site discomfort [Unknown]
  - Injection site scar [Unknown]
  - Injection site mass [Unknown]
  - Blood pressure increased [Unknown]
  - Needle issue [Unknown]

NARRATIVE: CASE EVENT DATE: 20190521
